FAERS Safety Report 7944858-8 (Version None)
Quarter: 2011Q4

REPORT INFORMATION
  Report Type: 
  Country: None (occurrence: None)
  Receive Date: 20111129
  Receipt Date: 20110222
  Transmission Date: 20120403
  Serious: No
  Sender: FDA-Public Use
  Company Number: US-MYLANLABS-2011S1002567

PATIENT
  Sex: Female

DRUGS (3)
  1. TOPROL-XL [Concomitant]
     Indication: BLOOD PRESSURE INCREASED
  2. BENICAR [Concomitant]
     Indication: BLOOD PRESSURE INCREASED
  3. AMLODIPINE BESYLATE [Suspect]
     Indication: BLOOD PRESSURE INCREASED
     Route: 048

REACTIONS (2)
  - DYSGEUSIA [None]
  - ERUCTATION [None]
